FAERS Safety Report 8603346-6 (Version None)
Quarter: 2012Q3

REPORT INFORMATION
  Report Type: 
  Country: None (occurrence: None)
  Receive Date: 20120817
  Receipt Date: 20120813
  Transmission Date: 20120928
  Serious: Yes (Hospitalization)
  Sender: FDA-Public Use
  Company Number: US-UCBSA-063690

PATIENT
  Age: 71 Year
  Sex: Female

DRUGS (2)
  1. CIMZIA [Suspect]
     Route: 058
     Dates: start: 20120718, end: 20120101
  2. HUMIRA [Concomitant]

REACTIONS (4)
  - LIP SWELLING [None]
  - SWELLING [None]
  - DRUG HYPERSENSITIVITY [None]
  - PHARYNGEAL OEDEMA [None]
